FAERS Safety Report 15525543 (Version 1)
Quarter: 2018Q4

REPORT INFORMATION
  Report Type: Spontaneous
  Country: US (occurrence: US)
  Receive Date: 20181019
  Receipt Date: 20181019
  Transmission Date: 20190205
  Serious: Yes (Death, Life-Threatening)
  Sender: FDA-Public Use
  Company Number: PHHY2018US128716

PATIENT
  Age: 51 Year
  Sex: Male

DRUGS (2)
  1. VALACICLOVIR [Concomitant]
     Active Substance: VALACYCLOVIR HYDROCHLORIDE
     Indication: HERPES SIMPLEX HEPATITIS
     Dosage: 1000 MG, UNK
     Route: 048
  2. ACICLOVIR [Suspect]
     Active Substance: ACYCLOVIR
     Indication: HERPES SIMPLEX HEPATITIS
     Dosage: INFUSION
     Route: 042

REACTIONS (1)
  - Drug resistance [Not Recovered/Not Resolved]
